FAERS Safety Report 8073975-X (Version None)
Quarter: 2012Q1

REPORT INFORMATION
  Report Type: 
  Country: None (occurrence: None)
  Receive Date: 20120119
  Receipt Date: 20120117
  Transmission Date: 20120608
  Serious: Yes (Life-Threatening, Hospitalization)
  Sender: FDA-Public Use
  Company Number: 1000026582

PATIENT
  Sex: Male
  Weight: 93 kg

DRUGS (3)
  1. BACLOFEN [Suspect]
     Indication: MULTIPLE SCLEROSIS
     Dosage: 1850 MG, ONCE, ORAL
     Route: 048
  2. LEXAPRO [Suspect]
     Dosage: 160 MG, ONCE
  3. MIRTAZAPINE [Suspect]
     Dosage: 230 MG, ONCE

REACTIONS (9)
  - TOXICITY TO VARIOUS AGENTS [None]
  - CONTINUOUS HAEMODIAFILTRATION [None]
  - SUICIDE ATTEMPT [None]
  - SINUS BRADYCARDIA [None]
  - MUSCLE SPASMS [None]
  - COMA [None]
  - RESPIRATORY ACIDOSIS [None]
  - CONVULSION [None]
  - INTENTIONAL OVERDOSE [None]
